FAERS Safety Report 6596123-1 (Version None)
Quarter: 2010Q1

REPORT INFORMATION
  Report Type: 
  Country: None (occurrence: None)
  Receive Date: 20100223
  Receipt Date: 20100209
  Transmission Date: 20100710
  Serious: Yes (Other)
  Sender: FDA-Public Use
  Company Number: FR-CELGENEUS-056-20484-10020655

PATIENT
  Sex: Male

DRUGS (17)
  1. INNOHEP [Suspect]
     Route: 058
     Dates: start: 20091119, end: 20091207
  2. INNOHEP [Suspect]
  3. PREVISCAN [Concomitant]
     Route: 048
     Dates: start: 20091130
  4. PREVISCAN [Concomitant]
  5. GLUCOPHAGE [Concomitant]
     Indication: DRUG USE FOR UNKNOWN INDICATION
     Route: 065
  6. GLIBENESE [Concomitant]
     Indication: DRUG USE FOR UNKNOWN INDICATION
     Route: 065
  7. BIPRETERAX [Concomitant]
     Indication: DRUG USE FOR UNKNOWN INDICATION
     Route: 065
  8. PROSCAR [Concomitant]
     Indication: DRUG USE FOR UNKNOWN INDICATION
     Route: 065
  9. TAHOR [Concomitant]
     Indication: DRUG USE FOR UNKNOWN INDICATION
     Route: 065
  10. VASTAREL [Concomitant]
     Indication: DRUG USE FOR UNKNOWN INDICATION
     Route: 065
  11. AMLOR [Concomitant]
     Route: 065
     Dates: start: 20091112, end: 20091116
  12. AMLOR [Concomitant]
  13. FLECAINIDE ACETATE [Concomitant]
     Route: 065
     Dates: start: 20091112, end: 20091116
  14. FLECAINIDE ACETATE [Concomitant]
     Dosage: HALF DOSAGE
     Route: 065
     Dates: start: 20091124, end: 20091130
  15. ARIXTRA [Concomitant]
     Route: 065
     Dates: start: 20091112, end: 20091119
  16. ARIXTRA [Concomitant]
  17. LOXEN [Concomitant]
     Indication: DRUG USE FOR UNKNOWN INDICATION
     Route: 065
     Dates: start: 20091116

REACTIONS (1)
  - EOSINOPHIL COUNT INCREASED [None]
